FAERS Safety Report 6747762-6 (Version None)
Quarter: 2010Q2

REPORT INFORMATION
  Report Type: 
  Country: None (occurrence: None)
  Receive Date: 20100528
  Receipt Date: 20100517
  Transmission Date: 20101027
  Serious: Yes (Other)
  Sender: FDA-Public Use
  Company Number: US-JNJFOC-20100102777

PATIENT
  Sex: Female
  Weight: 142.88 kg

DRUGS (13)
  1. TYLENOL (CAPLET) [Suspect]
     Route: 048
  2. TYLENOL (CAPLET) [Suspect]
     Indication: ARTHRITIS
     Route: 048
  3. FLUCONAZOLE [Concomitant]
     Indication: DRUG USE FOR UNKNOWN INDICATION
  4. REGULAR INSULIN [Concomitant]
     Indication: DIABETES MELLITUS
     Route: 050
  5. LANTUS [Concomitant]
     Indication: DIABETES MELLITUS
     Route: 050
  6. SINGULAIR [Concomitant]
     Indication: DRUG USE FOR UNKNOWN INDICATION
     Route: 048
  7. ENALAPRIL [Concomitant]
     Indication: DRUG USE FOR UNKNOWN INDICATION
  8. CELEXA [Concomitant]
     Indication: DRUG USE FOR UNKNOWN INDICATION
  9. SIMVASTATIN [Concomitant]
     Indication: DRUG USE FOR UNKNOWN INDICATION
  10. GLIMEPIRIDE [Concomitant]
     Indication: DRUG USE FOR UNKNOWN INDICATION
  11. ASPIRIN [Concomitant]
     Route: 048
  12. APIDRA [Concomitant]
     Dosage: 35U-40U PER DAY
  13. JANUMET [Concomitant]

REACTIONS (7)
  - ABDOMINAL PAIN UPPER [None]
  - DIARRHOEA [None]
  - MALAISE [None]
  - NAUSEA [None]
  - PANCREATITIS [None]
  - PRODUCT QUALITY ISSUE [None]
  - VOMITING [None]
